FAERS Safety Report 11498064 (Version 1)
Quarter: 2015Q3

REPORT INFORMATION
  Report Type: Spontaneous
  Country: JP (occurrence: JP)
  Receive Date: 20150911
  Receipt Date: 20150911
  Transmission Date: 20151125
  Serious: Yes (Other)
  Sender: FDA-Public Use
  Company Number: JP-MYLANLABS-2015M1030476

PATIENT

DRUGS (3)
  1. FLUDARABINE [Suspect]
     Active Substance: FLUDARABINE PHOSPHATE
     Indication: JUVENILE CHRONIC MYELOMONOCYTIC LEUKAEMIA
     Dosage: 30 MG/M2 ONCE DAILY FOR 4 DAYS (ON DAYS -7, -6, -5, AND -4 PRIOR TRANSPLANT)
     Route: 042
  2. BUSULFAN [Suspect]
     Active Substance: BUSULFAN
     Indication: JUVENILE CHRONIC MYELOMONOCYTIC LEUKAEMIA
     Dosage: ON DAYS -11, -10, -9, AND -8 PRIOR TRANSPLANT
     Route: 065
  3. MELPHALAN [Suspect]
     Active Substance: MELPHALAN
     Indication: JUVENILE CHRONIC MYELOMONOCYTIC LEUKAEMIA
     Dosage: 90 MG/M2 ONCE DAILY FOR 2 DAYS (ON DAYS -3 AND -2 PRIOR TRANSPLANT)
     Route: 042

REACTIONS (1)
  - Hepatotoxicity [Unknown]
